FAERS Safety Report 18868203 (Version 3)
Quarter: 2021Q1

REPORT INFORMATION
  Report Type: Report from Study
  Country: US (occurrence: US)
  Receive Date: 20210209
  Receipt Date: 20210310
  Transmission Date: 20210420
  Serious: Yes (Other)
  Sender: FDA-Public Use
  Company Number: US-OTSUKA-2021_003465

PATIENT
  Sex: Male

DRUGS (4)
  1. TOLVAPTAN [Suspect]
     Active Substance: TOLVAPTAN
     Dosage: UNK
     Route: 065
     Dates: start: 20210204, end: 202102
  2. TOLVAPTAN [Suspect]
     Active Substance: TOLVAPTAN
     Dosage: 45 MG
     Route: 065
     Dates: start: 2019
  3. TOLVAPTAN [Suspect]
     Active Substance: TOLVAPTAN
     Dosage: 15 UNK
     Route: 065
     Dates: start: 2019
  4. TOLVAPTAN [Suspect]
     Active Substance: TOLVAPTAN
     Indication: CONGENITAL CYSTIC KIDNEY DISEASE
     Dosage: UNK
     Route: 065
     Dates: start: 20190901, end: 2020

REACTIONS (5)
  - Pyrexia [Unknown]
  - Decreased appetite [Unknown]
  - Abdominal pain upper [Unknown]
  - Micturition disorder [Unknown]
  - Gout [Unknown]

NARRATIVE: CASE EVENT DATE: 2020
